FAERS Safety Report 12181380 (Version 2)
Quarter: 2016Q2

REPORT INFORMATION
  Report Type: Spontaneous
  Country: JP (occurrence: JP)
  Receive Date: 20160315
  Receipt Date: 20160406
  Transmission Date: 20160815
  Serious: Yes (Death, Hospitalization, Other)
  Sender: FDA-Public Use
  Company Number: JP-GILEAD-2016-0201914

PATIENT
  Age: 68 Year
  Sex: Female
  Weight: 49 kg

DRUGS (5)
  1. AZELNIDIPINE [Concomitant]
     Active Substance: AZELNIDIPINE
     Indication: HYPERTENSION
     Dosage: 5 MG, QD
     Route: 048
     Dates: start: 20140811, end: 20160227
  2. URSODEOXYCHOLIC AC [Concomitant]
     Indication: CHRONIC HEPATITIS C
     Dosage: 300 MG, TID
     Route: 065
     Dates: start: 20080318, end: 20160227
  3. GLYCYRON                           /00466401/ [Concomitant]
     Indication: CHRONIC HEPATITIS C
     Dosage: 2 DF, TID
     Route: 048
     Dates: start: 20110818, end: 20160227
  4. CANDESARTAN [Concomitant]
     Active Substance: CANDESARTAN
     Indication: HYPERTENSION
     Dosage: 1 DF, UNK
     Route: 048
     Dates: start: 20140703, end: 20160227
  5. HARVONI [Suspect]
     Active Substance: LEDIPASVIR\SOFOSBUVIR
     Indication: CHRONIC HEPATITIS C
     Dosage: 1 DF, UNK
     Route: 048
     Dates: start: 20160111, end: 20160227

REACTIONS (8)
  - Vomiting [Unknown]
  - Death [Fatal]
  - Cardio-respiratory arrest [Fatal]
  - Hepatic failure [Unknown]
  - Nausea [Unknown]
  - Dizziness [Fatal]
  - Depressed level of consciousness [Fatal]
  - Asthenia [Fatal]

NARRATIVE: CASE EVENT DATE: 20160223
